FAERS Safety Report 17667533 (Version 2)
Quarter: 2020Q2

REPORT INFORMATION
  Report Type: Spontaneous
  Country: ES (occurrence: ES)
  Receive Date: 20200414
  Receipt Date: 20200415
  Transmission Date: 20200713
  Serious: Yes (Disabling)
  Sender: FDA-Public Use
  Company Number: ES-JNJFOC-20200407327

PATIENT
  Age: 70 Year
  Sex: Male

DRUGS (9)
  1. EMCONCOR [Concomitant]
     Active Substance: BISOPROLOL FUMARATE
     Route: 065
  2. EZETROL [Concomitant]
     Active Substance: EZETIMIBE
     Route: 065
  3. DOLAK                              /01001802/ [Concomitant]
     Dosage: 60 MG PROLONGED RELEASED TABLETS 30 TABLETS
     Route: 065
  4. CRESTOR [Concomitant]
     Active Substance: ROSUVASTATIN CALCIUM
     Route: 065
  5. STELARA [Suspect]
     Active Substance: USTEKINUMAB
     Indication: PSORIASIS
     Dosage: 45MG WEEK 0, 4 AND AFTER THAT EVERY 12 WEEKS
     Route: 058
     Dates: start: 20190207, end: 20191219
  6. OMEPRAZOLE. [Concomitant]
     Active Substance: OMEPRAZOLE
     Route: 065
  7. DOLAK                              /01001802/ [Concomitant]
  8. ADIRO [Concomitant]
     Active Substance: ASPIRIN
     Route: 065
  9. ACOVIL [Concomitant]
     Active Substance: RAMIPRIL
     Dosage: 2,5 MG
     Route: 065

REACTIONS (1)
  - Pulmonary fibrosis [Not Recovered/Not Resolved]

NARRATIVE: CASE EVENT DATE: 20191204
